FAERS Safety Report 9155429 (Version 1)
Quarter: 2013Q1

REPORT INFORMATION
  Report Type: Spontaneous
  Country: US (occurrence: US)
  Receive Date: 20130311
  Receipt Date: 20130311
  Transmission Date: 20140127
  Serious: Yes (Other)
  Sender: FDA-Public Use
  Company Number: US-PFIZER INC-2013082134

PATIENT
  Age: 71 Year
  Sex: Male
  Weight: 104 kg

DRUGS (2)
  1. GABAPENTIN [Suspect]
     Indication: RESTLESS LEGS SYNDROME
     Dosage: 300 MG, 3X/DAY
  2. GABAPENTIN [Suspect]
     Indication: NEUROPATHY PERIPHERAL
     Dosage: 300 MG, 4X/DAY

REACTIONS (5)
  - Cardiac disorder [Unknown]
  - Dizziness [Not Recovered/Not Resolved]
  - Coordination abnormal [Not Recovered/Not Resolved]
  - Fatigue [Not Recovered/Not Resolved]
  - Speech disorder [Not Recovered/Not Resolved]
